FAERS Safety Report 8578213 (Version 16)
Quarter: 2015Q2

REPORT INFORMATION
  Report Type: Report from Study
  Country: HU (occurrence: HU)
  Receive Date: 20120524
  Receipt Date: 20150522
  Transmission Date: 20150821
  Serious: Yes (Hospitalization)
  Sender: FDA-Public Use
  Company Number: HU-ROCHE-1058610

PATIENT
  Age: 66 Year
  Sex: Female
  Weight: 53 kg

DRUGS (12)
  1. TEPERIN [Concomitant]
     Dosage: 2 TBL
     Route: 065
     Dates: start: 20120309
  2. CONTROLOC [Concomitant]
     Active Substance: PANTOPRAZOLE SODIUM
     Route: 065
     Dates: start: 20120413
  3. VEMURAFENIB [Suspect]
     Active Substance: VEMURAFENIB
     Dosage: DATE OF LAST DOSE PRIOR TO SAE- 6/APR/2012
     Route: 048
     Dates: start: 20120412
  4. VEMURAFENIB [Suspect]
     Active Substance: VEMURAFENIB
     Dosage: DATE OF LAST DOSE PRIOR TO SAE- 6/APR/2012
     Route: 048
     Dates: start: 20120406, end: 20120407
  5. VEMURAFENIB [Suspect]
     Active Substance: VEMURAFENIB
     Dosage: LAST DOSE PRIOR TO SAE: 26/APR/2012
     Route: 048
     Dates: start: 20120413, end: 20120426
  6. VITAMIN B6 [Concomitant]
     Active Substance: PYRIDOXINE HYDROCHLORIDE
     Route: 065
     Dates: start: 20120413
  7. VEMURAFENIB [Suspect]
     Active Substance: VEMURAFENIB
     Indication: MALIGNANT MELANOMA
     Dosage: LAST DOSE PRIOR TO SAE: 05/APR/2012
     Route: 048
     Dates: start: 20120313, end: 20120405
  8. VEMURAFENIB [Suspect]
     Active Substance: VEMURAFENIB
     Dosage: LAST DOSE PRIOR TO SAE: 08/MAY/2015
     Route: 048
     Dates: start: 20120506, end: 20120508
  9. CLARITIN [Concomitant]
     Active Substance: LORATADINE
     Route: 065
     Dates: start: 20120413
  10. ELOCOM [Concomitant]
     Active Substance: MOMETASONE FUROATE
     Route: 065
     Dates: start: 20120405
  11. AUGMENTIN [Concomitant]
     Active Substance: AMOXICILLIN\CLAVULANATE POTASSIUM
     Indication: TONSILLITIS
     Route: 065
     Dates: start: 20120402
  12. MEDROL [Concomitant]
     Active Substance: METHYLPREDNISOLONE
     Route: 065
     Dates: start: 20120319, end: 20120321

REACTIONS (1)
  - Dermatitis exfoliative [Recovered/Resolved]

NARRATIVE: CASE EVENT DATE: 20120406
